FAERS Safety Report 9339374 (Version 1)
Quarter: 2013Q2

REPORT INFORMATION
  Report Type: Spontaneous
  Country: DE (occurrence: DE)
  Receive Date: 20130610
  Receipt Date: 20130610
  Transmission Date: 20140414
  Serious: Yes (Hospitalization)
  Sender: FDA-Public Use
  Company Number: DE-BIOGENIDEC-2013BI050271

PATIENT
  Age: 48 Year
  Sex: Female
  Weight: 65 kg

DRUGS (3)
  1. AVONEX [Suspect]
     Indication: MULTIPLE SCLEROSIS
     Route: 030
     Dates: start: 20071001
  2. THYRONAJOD [Concomitant]
     Indication: THYROID DISORDER
     Dates: start: 2006
  3. DICLO ACUTE (DICLOFENAC) [Concomitant]
     Indication: RHEUMATIC DISORDER
     Dates: start: 2009

REACTIONS (3)
  - Chills [Recovered/Resolved]
  - Pain in extremity [Recovered/Resolved]
  - Abdominal adhesions [Recovered/Resolved]
